FAERS Safety Report 5801498-4 (Version None)
Quarter: 2008Q3

REPORT INFORMATION
  Report Type: 
  Country: None (occurrence: None)
  Receive Date: 20080707
  Receipt Date: 20080624
  Transmission Date: 20090109
  Serious: Yes (Other)
  Sender: FDA-Public Use
  Company Number: US-ROCHE-572352

PATIENT
  Sex: Male

DRUGS (3)
  1. ISOTRETINOIN [Suspect]
     Indication: DRUG USE FOR UNKNOWN INDICATION
     Dosage: THE PATIENT WAS DISPENSED WITH ACCUTANE 40MG CAPSULES ON 28 DECEMBER 2007.
     Route: 065
  2. AMNESTEEM [Suspect]
     Indication: DRUG USE FOR UNKNOWN INDICATION
     Dosage: THE PATIENT WAS DISPENSED WITH AMNESTEEM 40 MG CAPSULES ON 10 MARCH 2008 AND 18 APRIL 2008.
     Route: 065
  3. CLARAVIS [Suspect]
     Indication: DRUG USE FOR UNKNOWN INDICATION
     Dosage: THE PATIENT WAS DISPENSED WITH CLARAVIS 40 MG CAPSULES ON 17 MAY 2008.
     Route: 065

REACTIONS (1)
  - SUICIDE ATTEMPT [None]
